FAERS Safety Report 6077266-8 (Version None)
Quarter: 2009Q1

REPORT INFORMATION
  Report Type: 
  Country: None (occurrence: None)
  Receive Date: 20090213
  Receipt Date: 20090206
  Transmission Date: 20090719
  Serious: Yes (Hospitalization)
  Sender: FDA-Public Use
  Company Number: A0755257A

PATIENT
  Age: 61 Year
  Sex: Female
  Weight: 104.5 kg

DRUGS (8)
  1. AVANDIA [Suspect]
     Indication: TYPE 2 DIABETES MELLITUS
     Dosage: 4MG TWICE PER DAY
     Route: 048
     Dates: start: 20040801, end: 20070801
  2. ZOLOFT [Concomitant]
  3. ASPIRIN [Concomitant]
  4. CYCLOBENZAPRIN [Concomitant]
  5. TRAMADOL [Concomitant]
  6. LOVASTATIN [Concomitant]
     Dates: start: 20040830, end: 20060507
  7. OMEPRAZOLE [Concomitant]
     Dates: start: 20050413
  8. HYDROCHLOROTHIAZIDE [Concomitant]
     Dates: start: 20050413, end: 20070510

REACTIONS (6)
  - CARDIAC FAILURE CONGESTIVE [None]
  - CORONARY ARTERY DISEASE [None]
  - CORONARY ARTERY OCCLUSION [None]
  - HYPERTENSION [None]
  - MYOCARDIAL INFARCTION [None]
  - THROMBOSIS [None]
